FAERS Safety Report 19978850 (Version 2)
Quarter: 2021Q4

REPORT INFORMATION
  Report Type: Report from Study
  Country: US (occurrence: US)
  Receive Date: 20211020
  Receipt Date: 20211208
  Transmission Date: 20220303
  Serious: Yes (Other)
  Sender: FDA-Public Use
  Company Number: US-SEATTLE GENETICS-2021SGN05303

PATIENT
  Sex: Female

DRUGS (1)
  1. TUCATINIB [Suspect]
     Active Substance: TUCATINIB
     Indication: Product used for unknown indication
     Dosage: 150 MG
     Route: 065

REACTIONS (3)
  - Renal impairment [Unknown]
  - Laboratory test abnormal [Unknown]
  - Skin discolouration [Unknown]
